FAERS Safety Report 14539671 (Version 2)
Quarter: 2018Q1

REPORT INFORMATION
  Report Type: Spontaneous
  Country: IN (occurrence: IN)
  Receive Date: 20180216
  Receipt Date: 20180223
  Transmission Date: 20180509
  Serious: Yes (Other)
  Sender: FDA-Public Use
  Company Number: IN-TORRENT-00001586

PATIENT
  Age: 51 Year
  Sex: Male

DRUGS (4)
  1. GLIMEPIRIDE. [Suspect]
     Active Substance: GLIMEPIRIDE
     Indication: TYPE 2 DIABETES MELLITUS
     Dosage: FOR THE LAST 2 YEAR
     Route: 048
  2. ACARBOSE. [Suspect]
     Active Substance: ACARBOSE
     Indication: TYPE 2 DIABETES MELLITUS
     Dosage: FOR THE LAST 2 YEAR
  3. METFORMIN HYDROCHLORIDE. [Suspect]
     Active Substance: METFORMIN HYDROCHLORIDE
     Indication: TYPE 2 DIABETES MELLITUS
     Dosage: 3 YEARS OF TREATMENT
     Route: 048
  4. HYDROXYCHLOROQUINE SULFATE. [Suspect]
     Active Substance: HYDROXYCHLOROQUINE SULFATE
     Indication: TYPE 2 DIABETES MELLITUS

REACTIONS (3)
  - Diabetes mellitus inadequate control [Recovered/Resolved]
  - Neuropathy peripheral [Unknown]
  - Off label use [Unknown]
